FAERS Safety Report 16725220 (Version 1)
Quarter: 2019Q3

REPORT INFORMATION
  Report Type: Spontaneous
  Country: DE (occurrence: DE)
  Receive Date: 20190821
  Receipt Date: 20190821
  Transmission Date: 20191005
  Serious: Yes (Other)
  Sender: FDA-Public Use
  Company Number: DE-TEVA-2019-DE-1092095

PATIENT
  Sex: Male

DRUGS (1)
  1. VALSARTAN 160 MG [Suspect]
     Active Substance: VALSARTAN
     Dosage: 160 MILLIGRAM DAILY;
     Dates: start: 2012, end: 2018

REACTIONS (2)
  - Product impurity [Unknown]
  - Gastric cancer [Unknown]

NARRATIVE: CASE EVENT DATE: 2018
